FAERS Safety Report 4486744-4 (Version None)
Quarter: 2004Q4

REPORT INFORMATION
  Report Type: 
  Country: None (occurrence: None)
  Receive Date: 20041021
  Receipt Date: 20041008
  Transmission Date: 20050328
  Serious: Yes (Life-Threatening, Hospitalization)
  Sender: FDA-Public Use
  Company Number: J081-232-3583

PATIENT
  Age: 82 Year
  Sex: Female
  Weight: 47.5 kg

DRUGS (11)
  1. 22020 (DONEPEZIL HYDROCHLORIDE) [Suspect]
     Indication: DEMENTIA ALZHEIMER'S TYPE
     Dosage: 3 MG, 1 IN 1 D, PER ORAL
     Route: 048
     Dates: start: 20040414, end: 20040427
  2. DONEPEZIL/PLACEBO (DONEPEZIL HYDROCHLORIDE) [Suspect]
     Indication: DEMENTIA ALZHEIMER'S TYPE
     Dosage: DOUBLEBLIND, 1 IN 1 D, ORAL
     Route: 048
  3. SYMMETRAL (AMANTADINE HYDROCHLORIDE) [Concomitant]
  4. SERMION (NICERGOLINE) [Concomitant]
  5. LEVOTHYROXINE SODIUM [Concomitant]
  6. DAONIL (VOGLIBOSE) [Concomitant]
  7. PURSENNID (SEENA LEAF) [Concomitant]
  8. MAGNESIUM OXIDE (MAGNESIUM OXIDE) [Concomitant]
  9. FIBLAST (TRAFERMIN) [Concomitant]
  10. RINDERON-VG (VALISONE-G) [Concomitant]
  11. BASEN(VOGLIBOSE) [Concomitant]

REACTIONS (12)
  - APHAGIA [None]
  - CEREBROVASCULAR DISORDER [None]
  - DYSPHAGIA [None]
  - GOITRE [None]
  - JAUNDICE [None]
  - MALNUTRITION [None]
  - MASTICATION DISORDER [None]
  - MEDICATION ERROR [None]
  - NASOPHARYNGITIS [None]
  - PANCREATIC CARCINOMA [None]
  - SOMNOLENCE [None]
  - VOMITING [None]
